FAERS Safety Report 9051306 (Version 4)
Quarter: 2013Q3

REPORT INFORMATION
  Report Type: Report from Study
  Country: US (occurrence: US)
  Receive Date: 20130206
  Receipt Date: 20130805
  Transmission Date: 20140515
  Serious: Yes (Hospitalization, Other)
  Sender: FDA-Public Use
  Company Number: PHEH2013US002093

PATIENT
  Sex: Male

DRUGS (15)
  1. CLOZAPINE [Suspect]
     Dosage: 100 MG
  2. TRILEPTAL [Concomitant]
     Dosage: 300 MG,
  3. VISTARIL [Concomitant]
     Dosage: 50 MG,
  4. GABAPENTIN [Concomitant]
  5. LITHIUM CARBONATE [Concomitant]
     Dosage: 300 MG,
  6. TOPIRAMATE [Concomitant]
  7. PRAZOSIN [Concomitant]
  8. ROZEREM [Concomitant]
     Dosage: 8 MG,
  9. ATIVAN [Concomitant]
  10. PROPRANOLOL [Concomitant]
  11. NEURONTIN [Concomitant]
     Dosage: 800 MG,
  12. TOPAMAX [Concomitant]
     Dosage: 100 MG,
  13. MINIPRESS [Concomitant]
     Dosage: 5 MG,
  14. INDERAL [Concomitant]
     Dosage: 40 MG,
  15. PROSOM [Concomitant]

REACTIONS (6)
  - Abnormal behaviour [Unknown]
  - Psychotic disorder [Unknown]
  - Weight decreased [Unknown]
  - Feeling abnormal [Unknown]
  - White blood cell count abnormal [Unknown]
  - White blood cell count decreased [Unknown]
